FAERS Safety Report 20663799 (Version 2)
Quarter: 2022Q3

REPORT INFORMATION
  Report Type: Spontaneous
  Country: CA (occurrence: CA)
  Receive Date: 20220401
  Receipt Date: 20220712
  Transmission Date: 20221027
  Serious: Yes (Death, Hospitalization, Other)
  Sender: FDA-Public Use
  Company Number: CA-GLAXOSMITHKLINE-CA2022GSK058164

PATIENT

DRUGS (2)
  1. ZANTAC [Suspect]
     Active Substance: RANITIDINE HYDROCHLORIDE
     Indication: Gastrooesophageal reflux disease
     Dosage: UNK
     Route: 065
     Dates: start: 2011, end: 2017
  2. ZANTAC [Suspect]
     Active Substance: RANITIDINE HYDROCHLORIDE
     Indication: Dyspepsia

REACTIONS (15)
  - Death [Fatal]
  - Colorectal cancer metastatic [Unknown]
  - Metastases to liver [Unknown]
  - Colon cancer metastatic [Unknown]
  - Colon cancer [Unknown]
  - Colorectal cancer [Unknown]
  - Colon cancer stage IV [Unknown]
  - Colon neoplasm [Unknown]
  - Abdominal pain upper [Unknown]
  - Dyspepsia [Unknown]
  - Intestinal mass [Unknown]
  - Hepatomegaly [Unknown]
  - Abdominal pain [Unknown]
  - Constipation [Unknown]
  - Hepatic pain [Unknown]
